FAERS Safety Report 5569390-0 (Version None)
Quarter: 2007Q4

REPORT INFORMATION
  Report Type: 
  Country: None (occurrence: None)
  Receive Date: 20071220
  Receipt Date: 20071026
  Transmission Date: 20080405
  Serious: Yes (Other)
  Sender: FDA-Public Use
  Company Number: US-PURDUE-USA_2007_0030229

PATIENT
  Sex: Male
  Weight: 77 kg

DRUGS (2)
  1. ALL OTHER NON-THERAPEUTIC PRODUCTS [Suspect]
     Indication: DRUG ABUSE
  2. OXYCONTIN [Suspect]
     Indication: NECK PAIN
     Dosage: 40 MG, BID
     Dates: start: 20000101, end: 20070126

REACTIONS (12)
  - AGGRESSION [None]
  - AMNESIA [None]
  - ANHEDONIA [None]
  - COLD SWEAT [None]
  - CRYING [None]
  - DEPRESSION [None]
  - DIARRHOEA [None]
  - HYPERHIDROSIS [None]
  - MALAISE [None]
  - MALE SEXUAL DYSFUNCTION [None]
  - SUBSTANCE ABUSE [None]
  - SUICIDAL IDEATION [None]
